FAERS Safety Report 20832135 (Version 2)
Quarter: 2022Q2

REPORT INFORMATION
  Report Type: Report from Study
  Country: CA (occurrence: CA)
  Receive Date: 20220516
  Receipt Date: 20220531
  Transmission Date: 20220721
  Serious: Yes (Other)
  Sender: FDA-Public Use
  Company Number: CA-BAUSCH-BL-2021-017954

PATIENT
  Age: 57 Year
  Sex: Male

DRUGS (3)
  1. SILIQ [Suspect]
     Active Substance: BRODALUMAB
     Indication: Psoriasis
     Dosage: 210 MG / 1.5 ML, WEEKLY
     Route: 058
     Dates: start: 20210422, end: 202105
  2. SILIQ [Suspect]
     Active Substance: BRODALUMAB
     Dosage: 210 MG / 1.5 ML, Q2 WEEK
     Route: 058
     Dates: start: 202105, end: 202105
  3. SILIQ [Suspect]
     Active Substance: BRODALUMAB
     Dosage: 210 MG / 1.5 ML, Q2 WEEK, STOPPED AND WENT BACK ON SILIQ AGAIN
     Route: 058

REACTIONS (9)
  - Renal failure [Unknown]
  - Depressed mood [Recovering/Resolving]
  - Panic attack [Recovered/Resolved]
  - Psoriasis [Unknown]
  - Throat tightness [Recovered/Resolved]
  - Pain in extremity [Recovered/Resolved]
  - Muscle spasms [Not Recovered/Not Resolved]
  - Abdominal pain [Not Recovered/Not Resolved]
  - Drug ineffective [Unknown]

NARRATIVE: CASE EVENT DATE: 20210101
